FAERS Safety Report 24592317 (Version 1)
Quarter: 2024Q4

REPORT INFORMATION
  Report Type: Report from Study
  Country: VN (occurrence: VN)
  Receive Date: 20241108
  Receipt Date: 20241108
  Transmission Date: 20250114
  Serious: Yes (Other)
  Sender: ROCHE
  Company Number: VN-ROCHE-10000122272

PATIENT

DRUGS (5)
  1. BEVACIZUMAB [Suspect]
     Active Substance: BEVACIZUMAB
     Indication: Metastases to liver
     Route: 065
  2. CETUXIMAB [Suspect]
     Active Substance: CETUXIMAB
     Indication: Metastases to liver
     Route: 065
  3. OXALIPLATIN [Suspect]
     Active Substance: OXALIPLATIN
     Indication: Metastases to liver
     Route: 065
  4. IRINOTECAN [Suspect]
     Active Substance: IRINOTECAN
     Indication: Metastases to liver
     Route: 065
  5. FLUOROURACIL [Suspect]
     Active Substance: FLUOROURACIL
     Indication: Metastases to liver
     Route: 065

REACTIONS (9)
  - Vomiting [Unknown]
  - Diarrhoea [Unknown]
  - Peripheral nerve injury [Unknown]
  - Mouth ulceration [Unknown]
  - Haemoglobin decreased [Unknown]
  - Thrombocytopenia [Unknown]
  - Granulocytopenia [Unknown]
  - Hepatic enzyme increased [Unknown]
  - Blood creatinine increased [Unknown]
